FAERS Safety Report 21792993 (Version 1)
Quarter: 2022Q4

REPORT INFORMATION
  Report Type: Spontaneous
  Country: US (occurrence: US)
  Receive Date: 20221229
  Receipt Date: 20221229
  Transmission Date: 20230113
  Serious: No
  Sender: FDA-Public Use
  Company Number: US-ALKEM LABORATORIES LIMITED-US-ALKEM-2022-11554

PATIENT
  Age: 2 Year

DRUGS (1)
  1. SIROLIMUS [Suspect]
     Active Substance: SIROLIMUS
     Indication: Lymphatic disorder
     Dosage: UNK (2.98 +YEARS)
     Route: 065

REACTIONS (2)
  - Mouth ulceration [Unknown]
  - Toxicity to various agents [Unknown]
